FAERS Safety Report 5227181-4 (Version None)
Quarter: 2007Q1

REPORT INFORMATION
  Report Type: 
  Country: None (occurrence: None)
  Receive Date: 20070130
  Receipt Date: 20070117
  Transmission Date: 20070707
  Serious: Yes (Other)
  Sender: FDA-Public Use
  Company Number: 2007RR-05415

PATIENT
  Age: 40 Year
  Sex: Male
  Weight: 90 kg

DRUGS (3)
  1. LISINOPRIL [Suspect]
     Indication: BLOOD PRESSURE INCREASED
     Dosage: 10 MG, ORAL
     Route: 048
     Dates: start: 20060801, end: 20061101
  2. ASPIRIN [Concomitant]
  3. SIMVASTATIN [Concomitant]

REACTIONS (1)
  - LICHENOID KERATOSIS [None]
